FAERS Safety Report 8263532-4 (Version None)
Quarter: 2012Q2

REPORT INFORMATION
  Report Type: 
  Country: None (occurrence: None)
  Receive Date: 20120405
  Receipt Date: 20120319
  Transmission Date: 20120825
  Serious: Yes (Hospitalization)
  Sender: FDA-Public Use
  Company Number: BR-ELI_LILLY_AND_COMPANY-BR201201000012

PATIENT
  Sex: Male

DRUGS (5)
  1. LEVOID [Concomitant]
     Indication: HYPOTHYROIDISM
     Dosage: 75 UG, QD
     Route: 048
  2. DOXAZOSIN MESYLATE [Concomitant]
     Indication: PROSTATIC DISORDER
     Dosage: 2 MG, QD
     Route: 048
  3. EFFIENT [Suspect]
     Indication: ANTIPLATELET THERAPY
     Dosage: 10 MG, QD
     Route: 048
     Dates: start: 20111201
  4. LIPITOR [Concomitant]
     Dosage: 20 MG, QD
     Route: 048
  5. ASPIRIN [Concomitant]
     Dosage: 100 MG, QD
     Route: 048

REACTIONS (3)
  - ANGIOPLASTY [None]
  - HAEMATOMA [None]
  - INTRA-ABDOMINAL HAEMATOMA [None]
